FAERS Safety Report 7297855-2 (Version None)
Quarter: 2011Q1

REPORT INFORMATION
  Report Type: 
  Country: None (occurrence: None)
  Receive Date: 20110217
  Receipt Date: 20101122
  Transmission Date: 20110831
  Serious: No
  Sender: FDA-Public Use
  Company Number: US-KINGPHARMUSA00001-K201001422

PATIENT
  Sex: Female
  Weight: 89.796 kg

DRUGS (5)
  1. FLECTOR [Suspect]
     Indication: BACK PAIN
     Dosage: 1 PATCH, BID
     Route: 061
     Dates: start: 20090201, end: 20101101
  2. FLECTOR [Suspect]
     Dosage: 1 PATCH, BID
     Route: 061
     Dates: start: 20101101
  3. PAXIL [Concomitant]
     Indication: FIBROMYALGIA
     Dosage: UNK, QHS
     Route: 048
  4. OMEPRAZOLE [Concomitant]
     Indication: GASTROOESOPHAGEAL REFLUX DISEASE
     Dosage: UNK, QD
     Route: 048
     Dates: start: 20101001
  5. TRAZODONE HCL [Concomitant]
     Indication: FIBROMYALGIA
     Dosage: UNK, QHS
     Route: 048

REACTIONS (2)
  - APPLICATION SITE RASH [None]
  - DRUG INEFFECTIVE [None]
